FAERS Safety Report 19011435 (Version 1)
Quarter: 2021Q1

REPORT INFORMATION
  Report Type: Spontaneous
  Country: US (occurrence: US)
  Receive Date: 20210315
  Receipt Date: 20210315
  Transmission Date: 20210420
  Serious: Yes (Death)
  Sender: FDA-Public Use
  Company Number: None

PATIENT
  Age: 78 Year
  Sex: Male

DRUGS (5)
  1. PREDNISONE. [Suspect]
     Active Substance: PREDNISONE
     Indication: RENAL TRANSPLANT
     Route: 048
     Dates: start: 20180815
  2. MYCOPHENOLIC 180MG [Concomitant]
     Active Substance: MYCOPHENOLIC ACID
     Dates: start: 20180906
  3. TACROLIMUS 0.5MG [Concomitant]
     Active Substance: TACROLIMUS
     Dates: start: 20190726
  4. PREDNISONE 5MG [Concomitant]
     Active Substance: PREDNISONE
     Dates: start: 20180815
  5. TACROLIMUS. [Suspect]
     Active Substance: TACROLIMUS
     Indication: RENAL TRANSPLANT
     Route: 048
     Dates: start: 20190726

REACTIONS (1)
  - Death [None]

NARRATIVE: CASE EVENT DATE: 20210225
